FAERS Safety Report 8343633-2 (Version None)
Quarter: 2012Q2

REPORT INFORMATION
  Report Type: 
  Country: None (occurrence: None)
  Receive Date: 20120503
  Receipt Date: 20120503
  Transmission Date: 20120825
  Serious: No
  Sender: FDA-Public Use
  Company Number: None

PATIENT
  Sex: Female
  Weight: 84.6 kg

DRUGS (1)
  1. CISPLATIN [Suspect]
     Dosage: 95 MG

REACTIONS (1)
  - LYMPHOCYTE COUNT DECREASED [None]
